FAERS Safety Report 11691607 (Version 1)
Quarter: 2015Q4

REPORT INFORMATION
  Report Type: Spontaneous
  Country: FR (occurrence: FR)
  Receive Date: 20151102
  Receipt Date: 20151102
  Transmission Date: 20160304
  Serious: Yes (Hospitalization, Other)
  Sender: FDA-Public Use
  Company Number: FR-AMGEN-FRASP2015114467

PATIENT
  Age: 69 Year
  Sex: Female

DRUGS (3)
  1. MIANSERINE MYLAN [Suspect]
     Active Substance: MIANSERIN HYDROCHLORIDE
     Indication: DEPRESSION
     Dosage: 10 MG, 1X/DAY
     Route: 048
     Dates: end: 20150510
  2. ENBREL [Suspect]
     Active Substance: ETANERCEPT
     Indication: RHEUMATOID ARTHRITIS
     Dosage: 50 MG, WEEKLY
     Route: 058
     Dates: start: 20120611, end: 20150710
  3. ALPRAZOLAM MYLAN [Suspect]
     Active Substance: ALPRAZOLAM
     Indication: ANXIETY
     Dosage: 0.25 MG, 1X/DAY
     Route: 048
     Dates: end: 20150510

REACTIONS (13)
  - Post thrombotic syndrome [Unknown]
  - Morphoea [Recovering/Resolving]
  - Eczema [Recovered/Resolved]
  - Lymphoedema [Recovering/Resolving]
  - Hamartoma [Unknown]
  - Prurigo [Unknown]
  - Oedema peripheral [Recovered/Resolved]
  - Joint ankylosis [Unknown]
  - Groin abscess [Unknown]
  - Depression [Unknown]
  - Rash erythematous [Recovered/Resolved]
  - Dermatitis bullous [Recovered/Resolved]
  - Disease recurrence [Unknown]

NARRATIVE: CASE EVENT DATE: 2015
